FAERS Safety Report 19371035 (Version 1)
Quarter: 2021Q2

REPORT INFORMATION
  Report Type: Spontaneous
  Country: US (occurrence: US)
  Receive Date: 20210603
  Receipt Date: 20210603
  Transmission Date: 20210717
  Serious: No
  Sender: FDA-Public Use
  Company Number: US-KYOWAKIRIN-2021BKK008529

PATIENT

DRUGS (1)
  1. SANCUSO [Suspect]
     Active Substance: GRANISETRON
     Indication: IMPAIRED GASTRIC EMPTYING
     Dosage: 1 DF (APPLY ONE PATCH EVERY 5 DAYS)
     Route: 062

REACTIONS (2)
  - Drug effective for unapproved indication [Not Recovered/Not Resolved]
  - Application site pruritus [Not Recovered/Not Resolved]
